FAERS Safety Report 9445327 (Version 2)
Quarter: 2013Q3

REPORT INFORMATION
  Report Type: Spontaneous
  Country: DE (occurrence: DE)
  Receive Date: 20130807
  Receipt Date: 20130821
  Transmission Date: 20140515
  Serious: Yes (Other)
  Sender: FDA-Public Use
  Company Number: DE-GILEAD-2013-0080525

PATIENT
  Age: 50 Year
  Sex: Male

DRUGS (8)
  1. TENOFOVIR DISOPROXIL FUMARATE [Suspect]
     Indication: HIV INFECTION
  2. EMTRIVA [Suspect]
     Indication: HIV INFECTION
  3. AMPHOTERICIN B, LIPOSOME [Suspect]
     Indication: MUCOCUTANEOUS LEISHMANIASIS
     Dosage: 1 MG/KG, QD
  4. AMPHOTERICIN B, LIPOSOME [Suspect]
     Dosage: 3 MG/KG, CYCLICAL
  5. AMPHOTERICIN B, LIPOSOME [Suspect]
     Dosage: 3 MG/KG, QD
  6. RALTEGRAVIR [Concomitant]
     Indication: HIV INFECTION
     Dosage: UNK
  7. MILTEFOSINE [Concomitant]
     Indication: MUCOCUTANEOUS LEISHMANIASIS
     Dosage: 150 MG, QD
  8. IBUPROFEN [Concomitant]
     Indication: TOOTHACHE

REACTIONS (2)
  - Renal impairment [Recovered/Resolved]
  - Drug ineffective [Recovered/Resolved]
